FAERS Safety Report 12057620 (Version 3)
Quarter: 2017Q4

REPORT INFORMATION
  Report Type: Spontaneous
  Country: US (occurrence: US)
  Receive Date: 20160210
  Receipt Date: 20171017
  Transmission Date: 20180320
  Serious: Yes (Other)
  Sender: FDA-Public Use
  Company Number: US-ROCHE-1602268

PATIENT
  Age: 72 Year
  Sex: Female

DRUGS (4)
  1. ESBRIET [Suspect]
     Active Substance: PIRFENIDONE
     Indication: IDIOPATHIC PULMONARY FIBROSIS
     Route: 048
     Dates: start: 20150310
  2. ESBRIET [Suspect]
     Active Substance: PIRFENIDONE
     Route: 048
     Dates: start: 20150406
  3. ESBRIET [Suspect]
     Active Substance: PIRFENIDONE
     Route: 048
     Dates: start: 20160607
  4. ESBRIET [Suspect]
     Active Substance: PIRFENIDONE
     Route: 048
     Dates: start: 20161126

REACTIONS (10)
  - Weight decreased [Unknown]
  - Rash [Unknown]
  - Dyspnoea [Unknown]
  - Nausea [Unknown]
  - Productive cough [Unknown]
  - Chest pain [Unknown]
  - Pruritus [Unknown]
  - Cough [Unknown]
  - Decreased appetite [Unknown]
  - Rash pruritic [Unknown]

NARRATIVE: CASE EVENT DATE: 20150608
